FAERS Safety Report 4574540-9 (Version None)
Quarter: 2005Q1

REPORT INFORMATION
  Report Type: 
  Country: None (occurrence: None)
  Receive Date: 20050204
  Receipt Date: 20050120
  Transmission Date: 20050727
  Serious: Yes (Hospitalization)
  Sender: FDA-Public Use
  Company Number: T04-USA-08273-01

PATIENT
  Age: 63 Year
  Sex: Female
  Weight: 44.9061 kg

DRUGS (8)
  1. MEMANTINE HCL [Suspect]
     Indication: DEMENTIA ALZHEIMER'S TYPE
     Dosage: 204 MG QD PO
     Route: 048
     Dates: start: 20031031
  2. MEMANTINE (OPEN LABEL, PHASE B) (MEMANTINE) [Suspect]
     Indication: DEMENTIA ALZHEIMER'S TYPE
     Dosage: 20 MG QD PO
     Route: 048
     Dates: start: 20030614, end: 20031030
  3. MEMANTINE (DOUBLE BLIND, PHASE A) (MEMANTINE) [Suspect]
     Indication: DEMENTIA ALZHEIMER'S TYPE
     Dosage: 4 TABLET QD PO
     Route: 048
     Dates: start: 20030418, end: 20030613
  4. ASPIRIN [Concomitant]
  5. ALENDRONATE (ALENDRONATE SODIUM) [Concomitant]
  6. PAROXETINE [Concomitant]
  7. TOCOPHEROL CONCENTRATE CAP [Concomitant]
  8. GINKGO (GINKGO BILOBA) [Concomitant]

REACTIONS (1)
  - ULCER HAEMORRHAGE [None]
